FAERS Safety Report 8520098-9 (Version None)
Quarter: 2012Q3

REPORT INFORMATION
  Report Type: 
  Country: None (occurrence: None)
  Receive Date: 20120719
  Receipt Date: 20120716
  Transmission Date: 20120928
  Serious: No
  Sender: FDA-Public Use
  Company Number: US-BAYER-2012-071493

PATIENT
  Age: 38 Year
  Sex: Male
  Weight: 111.57 kg

DRUGS (7)
  1. LISINOPRIL [Concomitant]
  2. LISINOPRIL [Concomitant]
  3. IBUPROFEN [Concomitant]
  4. VITAMIN B-12 [Concomitant]
     Dosage: 500 MG, UNK
  5. BETASERON [Suspect]
     Dosage: 0.25 MG, QOD
     Route: 058
  6. LOVAZA [Concomitant]
  7. AMITRIPTYLINE HCL [Concomitant]
     Dosage: 10 MG, UNK

REACTIONS (2)
  - INFLUENZA LIKE ILLNESS [None]
  - DIARRHOEA [None]
